FAERS Safety Report 9769062 (Version 1)
Quarter: 2013Q4

REPORT INFORMATION
  Report Type: Spontaneous
  Country: GB (occurrence: None)
  Receive Date: 20131216
  Receipt Date: 20131216
  Transmission Date: 20140711
  Serious: Yes (Disabling, Other)
  Sender: FDA-Public Use
  Company Number: AUR-APL-2013-10316

PATIENT
  Age: 79 Year
  Sex: Female
  Weight: 82.55 kg

DRUGS (3)
  1. SIMVASTATIN [Suspect]
     Indication: CEREBROVASCULAR ACCIDENT
     Route: 048
     Dates: start: 20130630
  2. WARFARIN [Suspect]
     Indication: CEREBROVASCULAR ACCIDENT
     Route: 048
     Dates: start: 20120630
  3. PARACETAMOL [Concomitant]

REACTIONS (3)
  - Dizziness postural [None]
  - Gait disturbance [None]
  - Activities of daily living impaired [None]
